FAERS Safety Report 7265430-1 (Version None)
Quarter: 2011Q1

REPORT INFORMATION
  Report Type: 
  Country: None (occurrence: None)
  Receive Date: 20110131
  Receipt Date: 20110121
  Transmission Date: 20110831
  Serious: Yes (Other)
  Sender: FDA-Public Use
  Company Number: US-PERRIGO-11US000566

PATIENT
  Age: 75 Year
  Sex: Male

DRUGS (1)
  1. TUSSIN DM CLR LIQ 578 [Suspect]
     Indication: PULMONARY CONGESTION
     Dosage: UNK
     Route: 048
     Dates: start: 20110101

REACTIONS (2)
  - INCORRECT DOSE ADMINISTERED [None]
  - HALLUCINATION [None]
